FAERS Safety Report 5377819-6 (Version None)
Quarter: 2007Q3

REPORT INFORMATION
  Report Type: 
  Country: None (occurrence: None)
  Receive Date: 20070703
  Receipt Date: 20070621
  Transmission Date: 20080115
  Serious: Yes (Hospitalization, Other)
  Sender: FDA-Public Use
  Company Number: US-PFIZER INC-2007052646

PATIENT
  Sex: Male
  Weight: 89.545 kg

DRUGS (7)
  1. CHANTIX [Suspect]
     Indication: SMOKING CESSATION THERAPY
  2. KEFLEX [Concomitant]
  3. OMEGA 3 [Concomitant]
  4. VITAMIN CAP [Concomitant]
  5. ALL OTHER THERAPEUTIC PRODUCTS [Concomitant]
  6. GARLIC [Concomitant]
  7. CLARITIN [Concomitant]

REACTIONS (4)
  - ACUTE CORONARY SYNDROME [None]
  - ACUTE MYOCARDIAL INFARCTION [None]
  - CHEST PAIN [None]
  - THROMBOSIS [None]
